FAERS Safety Report 9281834 (Version 1)
Quarter: 2013Q2

REPORT INFORMATION
  Report Type: Report from Study
  Country: RU (occurrence: RU)
  Receive Date: 20130510
  Receipt Date: 20130510
  Transmission Date: 20140414
  Serious: Yes (Hospitalization, Other)
  Sender: FDA-Public Use
  Company Number: RU-ROCHE-1219884

PATIENT
  Age: 0 Day
  Sex: Male
  Weight: 3 kg

DRUGS (1)
  1. SAQUINAVIR [Suspect]
     Indication: PRODUCT USED FOR UNKNOWN INDICATION
     Route: 064
     Dates: start: 20120312, end: 20120405

REACTIONS (5)
  - Perinatal brain damage [Unknown]
  - Developmental coordination disorder [Unknown]
  - Colitis ischaemic [Unknown]
  - Jaundice neonatal [Unknown]
  - Maternal exposure timing unspecified [Unknown]
